FAERS Safety Report 18879646 (Version 5)
Quarter: 2022Q1

REPORT INFORMATION
  Report Type: Report from Study
  Country: JP (occurrence: JP)
  Receive Date: 20210211
  Receipt Date: 20220208
  Transmission Date: 20220423
  Serious: Yes (Death, Hospitalization, Other)
  Sender: FDA-Public Use
  Company Number: JP-KYOWAKIRIN-2021AKK001522

PATIENT

DRUGS (33)
  1. MOGAMULIZUMAB [Suspect]
     Active Substance: MOGAMULIZUMAB
     Indication: Adult T-cell lymphoma/leukaemia
     Dosage: 1 MG/KG
     Route: 041
     Dates: start: 20171227, end: 20171227
  2. DEXAMETHASONE SODIUM PHOSPHATE [Concomitant]
     Active Substance: DEXAMETHASONE SODIUM PHOSPHATE
     Indication: Prophylaxis
     Dosage: 6.6 MG
     Route: 065
     Dates: start: 20171227, end: 20171227
  3. DEXCHLORPHENIRAMINE MALEATE [Concomitant]
     Active Substance: DEXCHLORPHENIRAMINE MALEATE
     Indication: Prophylaxis
     Dosage: UNK
     Route: 048
     Dates: start: 20171227, end: 20171227
  4. ISCOTIN [Concomitant]
     Active Substance: ISONIAZID
     Indication: Infection prophylaxis
     Dosage: UNK
     Route: 048
     Dates: start: 20171227, end: 20180124
  5. FLUCONAZOLE [Concomitant]
     Active Substance: FLUCONAZOLE
     Indication: Infection prophylaxis
     Dosage: UNK
     Route: 048
     Dates: start: 20171227, end: 20180124
  6. SULFAMETHOXAZOLE\TRIMETHOPRIM [Concomitant]
     Active Substance: SULFAMETHOXAZOLE\TRIMETHOPRIM
     Indication: Infection prophylaxis
     Dosage: UNK
     Route: 048
     Dates: start: 20171227, end: 20180124
  7. ZOLPIDEM TARTRATE [Concomitant]
     Active Substance: ZOLPIDEM TARTRATE
     Indication: Prophylaxis
     Dosage: UNK
     Route: 048
     Dates: end: 20180101
  8. MAGNESIUM OXIDE [Concomitant]
     Active Substance: MAGNESIUM OXIDE
     Indication: Prophylaxis
     Dosage: UNK
     Route: 048
     Dates: start: 20171227, end: 20180124
  9. XYZAL [Concomitant]
     Active Substance: LEVOCETIRIZINE DIHYDROCHLORIDE
     Indication: Prophylaxis
     Dosage: UNK
     Route: 048
     Dates: start: 20171227, end: 20180124
  10. MIYA-BM [Concomitant]
     Active Substance: CLOSTRIDIUM BUTYRICUM SPORES STRAIN M-55
     Indication: Prophylaxis
     Dosage: UNK
     Route: 048
     Dates: start: 20171227, end: 20180124
  11. UBIDECARENONE [Concomitant]
     Active Substance: UBIDECARENONE
     Indication: Prophylaxis
     Dosage: UNK
     Route: 048
     Dates: start: 20171227, end: 20180124
  12. RABEPRAZOLE SODIUM [Concomitant]
     Active Substance: RABEPRAZOLE SODIUM
     Indication: Prophylaxis
     Dosage: UNK
     Route: 048
     Dates: end: 20180124
  13. PREDONINE [Concomitant]
     Active Substance: PREDNISOLONE
     Indication: Prophylaxis
     Dosage: UNK
     Route: 048
     Dates: start: 20171228, end: 20180124
  14. OLOPATADINE HYDROCHLORIDE OD [Concomitant]
     Dosage: UNK
     Route: 048
     Dates: start: 20171227, end: 20180124
  15. TRAMADOL [Concomitant]
     Active Substance: TRAMADOL
     Dosage: UNK
     Route: 048
     Dates: end: 20180101
  16. FEBUXOSTAT [Concomitant]
     Active Substance: FEBUXOSTAT
     Indication: Prophylaxis
     Dosage: UNK
     Route: 048
     Dates: start: 20171227, end: 20180124
  17. LOPERAMIDE HYDROCHLORIDE [Concomitant]
     Active Substance: LOPERAMIDE HYDROCHLORIDE
     Indication: Diarrhoea
     Dosage: UNK
     Route: 048
     Dates: start: 20180121, end: 20180122
  18. XARELTO [Concomitant]
     Active Substance: RIVAROXABAN
     Indication: Prophylaxis
     Dosage: UNK
     Route: 048
     Dates: start: 20180122, end: 20180124
  19. URSODIOL [Concomitant]
     Active Substance: URSODIOL
     Dosage: UNK
     Route: 048
     Dates: end: 20180124
  20. ETIZOLAM [Concomitant]
     Active Substance: ETIZOLAM
     Indication: Insomnia
     Dosage: UNK
     Route: 048
     Dates: start: 20180118, end: 20180124
  21. SAMSCA [Concomitant]
     Active Substance: TOLVAPTAN
     Indication: Prophylaxis
     Dosage: UNK
     Route: 048
     Dates: start: 20180112, end: 20180124
  22. SPIRONOLACTONE [Concomitant]
     Active Substance: SPIRONOLACTONE
     Indication: Prophylaxis
     Dosage: UNK
     Route: 048
     Dates: start: 20180104, end: 20180124
  23. FILGRASTIM [Concomitant]
     Active Substance: FILGRASTIM
     Indication: Myelosuppression
     Dosage: UNK
     Route: 065
     Dates: start: 20180104, end: 20180124
  24. CARBAZOCHROME SODIUM SULFONATE [Concomitant]
     Active Substance: CARBAZOCHROME SODIUM SULFONATE
     Indication: Ecchymosis
     Dosage: UNK
     Route: 065
     Dates: start: 20180123, end: 20180124
  25. CARBAZOCHROME SODIUM SULFONATE [Concomitant]
     Active Substance: CARBAZOCHROME SODIUM SULFONATE
     Indication: Haemorrhage subcutaneous
  26. BIAPENEM [Concomitant]
     Active Substance: BIAPENEM
     Indication: Pyrexia
     Dosage: UNK
     Route: 065
     Dates: start: 20180111, end: 20180117
  27. AMPICILLIN SODIUM\SULBACTAM SODIUM [Concomitant]
     Active Substance: AMPICILLIN SODIUM\SULBACTAM SODIUM
     Indication: Pyrexia
     Dosage: UNK
     Route: 065
     Dates: start: 20180104, end: 20180110
  28. SOLU-CORTEF [Concomitant]
     Active Substance: HYDROCORTISONE SODIUM SUCCINATE
     Indication: Pyrexia
     Dosage: UNK
     Route: 065
     Dates: start: 20180103, end: 20180124
  29. FUROSEMIDE [Concomitant]
     Active Substance: FUROSEMIDE
     Indication: Prophylaxis
     Dosage: UNK
     Route: 065
     Dates: start: 20171227, end: 20180115
  30. HEPARIN SODIUM [Concomitant]
     Active Substance: HEPARIN SODIUM
     Indication: Prophylaxis
     Dosage: UNK
     Route: 065
     Dates: start: 20171226, end: 20180123
  31. MAXIPIME [Concomitant]
     Active Substance: CEFEPIME HYDROCHLORIDE
     Indication: Pyrexia
     Dosage: UNK
     Route: 065
     Dates: start: 20180104, end: 20180110
  32. POTASSIUM ASPARTATE [Concomitant]
     Active Substance: POTASSIUM ASPARTATE
     Indication: Prophylaxis
     Dosage: UNK
     Route: 065
     Dates: start: 20180102, end: 20180119
  33. SODIUM CHLORIDE [Concomitant]
     Active Substance: SODIUM CHLORIDE
     Indication: Pyrexia
     Dosage: UNK
     Route: 065
     Dates: start: 20180111, end: 20180117

REACTIONS (8)
  - Depressed level of consciousness [Fatal]
  - Blood pressure decreased [Fatal]
  - Haemorrhage subcutaneous [Not Recovered/Not Resolved]
  - Myelosuppression [Not Recovered/Not Resolved]
  - Ecchymosis [Not Recovered/Not Resolved]
  - Pyrexia [Not Recovered/Not Resolved]
  - Insomnia [Not Recovered/Not Resolved]
  - Diarrhoea [Recovered/Resolved]

NARRATIVE: CASE EVENT DATE: 20180102
